FAERS Safety Report 9842101 (Version 1)
Quarter: 2014Q1

REPORT INFORMATION
  Report Type: Spontaneous
  Country: US (occurrence: US)
  Receive Date: 20140124
  Receipt Date: 20140124
  Transmission Date: 20141002
  Serious: Yes (Other)
  Sender: FDA-Public Use
  Company Number: CHPA2014US001144

PATIENT
  Age: 68 Year
  Sex: Male

DRUGS (1)
  1. TRIAMINIC COLD AND ALLERGY [Suspect]
     Dosage: UNK
     Route: 048

REACTIONS (2)
  - Throat cancer [Unknown]
  - Drug administered to patient of inappropriate age [Unknown]
